FAERS Safety Report 15536164 (Version 1)
Quarter: 2018Q4

REPORT INFORMATION
  Report Type: Spontaneous
  Country: UY (occurrence: UY)
  Receive Date: 20181022
  Receipt Date: 20181022
  Transmission Date: 20190205
  Serious: Yes (Hospitalization, Other)
  Sender: FDA-Public Use
  Company Number: UY-ACCORD-088907

PATIENT
  Age: 60 Year
  Sex: Female

DRUGS (1)
  1. FUROSEMIDE. [Suspect]
     Active Substance: FUROSEMIDE
     Indication: CARDIAC FAILURE
     Dosage: TWO TIMES A DAY.
     Route: 048

REACTIONS (4)
  - Acute kidney injury [Recovered/Resolved]
  - Ischaemic hepatitis [Unknown]
  - Hypotension [Recovered/Resolved]
  - Syncope [Unknown]
